FAERS Safety Report 5637128-4 (Version None)
Quarter: 2008Q1

REPORT INFORMATION
  Report Type: 
  Country: None (occurrence: None)
  Receive Date: 20080225
  Receipt Date: 20071114
  Transmission Date: 20080703
  Serious: No
  Sender: FDA-Public Use
  Company Number: US-BRISTOL-MYERS SQUIBB COMPANY-13982806

PATIENT

DRUGS (2)
  1. GLUCOPHAGE [Suspect]
  2. AVANDIA [Suspect]

REACTIONS (1)
  - MALAISE [None]
